FAERS Safety Report 25142236 (Version 1)
Quarter: 2025Q1

REPORT INFORMATION
  Report Type: Spontaneous
  Country: PL (occurrence: PL)
  Receive Date: 20250331
  Receipt Date: 20250331
  Transmission Date: 20250409
  Serious: Yes (Life-Threatening, Other)
  Sender: MYLAN
  Company Number: PL-ROCHE-10000229740

PATIENT
  Age: 45 Year

DRUGS (19)
  1. PREDNISONE [Suspect]
     Active Substance: PREDNISONE
     Indication: Follicular lymphoma
     Dates: start: 20170202, end: 20170224
  2. BORTEZOMIB [Suspect]
     Active Substance: BORTEZOMIB
     Indication: Follicular lymphoma
     Dates: start: 20180525, end: 20180928
  3. CISPLATIN [Suspect]
     Active Substance: CISPLATIN
     Indication: Follicular lymphoma
     Dates: start: 20171104, end: 20171207
  4. RITUXIMAB [Suspect]
     Active Substance: RITUXIMAB
     Indication: Follicular lymphoma
     Dates: start: 20170202, end: 20170224
  5. LUNSUMIO [Suspect]
     Active Substance: MOSUNETUZUMAB-AXGB
     Indication: Follicular lymphoma
  6. CYCLOPHOSPHAMIDE [Suspect]
     Active Substance: CYCLOPHOSPHAMIDE
     Indication: Follicular lymphoma
     Dates: start: 20170202, end: 20170224
  7. DOXORUBICIN [Suspect]
     Active Substance: DOXORUBICIN
     Indication: Follicular lymphoma
     Dates: start: 20170202, end: 20170224
  8. VINCRISTINE [Suspect]
     Active Substance: VINCRISTINE
     Indication: Follicular lymphoma
     Dates: start: 20170202, end: 20170224
  9. ETOPOSIDE [Suspect]
     Active Substance: ETOPOSIDE
     Indication: Follicular lymphoma
     Dates: start: 20171104, end: 20171207
  10. ETOPOSIDE [Suspect]
     Active Substance: ETOPOSIDE
     Dates: start: 20180222, end: 20180224
  11. METHYLPREDNISOLONE [Suspect]
     Active Substance: METHYLPREDNISOLONE
     Indication: Follicular lymphoma
     Dates: start: 20171104, end: 20171207
  12. CYTARABINE [Suspect]
     Active Substance: CYTARABINE
     Indication: Follicular lymphoma
     Dates: start: 20171104, end: 20171207
  13. IFOSFAMIDE [Suspect]
     Active Substance: IFOSFAMIDE
     Indication: Follicular lymphoma
     Dates: start: 20180222, end: 20180224
  14. LENALIDOMIDE [Suspect]
     Active Substance: LENALIDOMIDE
     Indication: Follicular lymphoma
  15. CARBOPLATIN [Suspect]
     Active Substance: CARBOPLATIN
     Indication: Follicular lymphoma
     Dates: start: 20180222, end: 20180224
  16. DEXAMETHASONE [Suspect]
     Active Substance: DEXAMETHASONE
     Indication: Follicular lymphoma
     Dates: start: 20180525, end: 20180928
  17. DEXAMETHASONE [Suspect]
     Active Substance: DEXAMETHASONE
  18. BENDAMUSTINE [Suspect]
     Active Substance: BENDAMUSTINE
     Indication: Follicular lymphoma
     Dates: start: 20181116, end: 20181212
  19. NEMTABRUTINIB [Suspect]
     Active Substance: NEMTABRUTINIB
     Indication: Follicular lymphoma

REACTIONS (7)
  - Anaphylactic shock [Unknown]
  - Leukopenia [Unknown]
  - Thrombocytopenia [Unknown]
  - Acetabulum fracture [Unknown]
  - Neutropenia [Unknown]
  - Disease progression [Unknown]
  - Splenomegaly [Unknown]

NARRATIVE: CASE EVENT DATE: 20240506
